FAERS Safety Report 12381797 (Version 5)
Quarter: 2016Q3

REPORT INFORMATION
  Report Type: Spontaneous
  Country: US (occurrence: US)
  Receive Date: 20160518
  Receipt Date: 20160818
  Transmission Date: 20161109
  Serious: No
  Sender: FDA-Public Use
  Company Number: US-ACTELION-A-US2016-134117

PATIENT
  Age: 47 Year
  Sex: Female

DRUGS (26)
  1. OPSUMIT [Suspect]
     Active Substance: MACITENTAN
     Indication: PULMONARY ARTERIAL HYPERTENSION
     Dosage: 10 MG, QD
     Route: 048
     Dates: start: 20151222
  2. IBUPROFEN. [Concomitant]
     Active Substance: IBUPROFEN
  3. SPIRONOLACTONE. [Concomitant]
     Active Substance: SPIRONOLACTONE
     Dosage: 50 MG, QD
     Dates: start: 201604
  4. UPTRAVI [Suspect]
     Active Substance: SELEXIPAG
     Dosage: 800 MCG, BID
     Route: 048
     Dates: start: 201604
  5. ALLEGRA [Concomitant]
     Active Substance: FEXOFENADINE HYDROCHLORIDE
     Dosage: 100 MG, QD
  6. DOXYCYCLIN [Concomitant]
     Active Substance: DOXYCYCLINE
  7. UPTRAVI [Suspect]
     Active Substance: SELEXIPAG
     Dosage: UNK
     Route: 048
     Dates: start: 20160512
  8. ADCIRCA [Concomitant]
     Active Substance: TADALAFIL
     Dosage: 40 MG, QD
  9. VITAMIN D [Concomitant]
     Active Substance: CHOLECALCIFEROL
  10. TORSEMIDE. [Concomitant]
     Active Substance: TORSEMIDE
     Dosage: 15 MG, BID
     Dates: start: 201603
  11. UPTRAVI [Suspect]
     Active Substance: SELEXIPAG
     Dosage: 1200 MCG, BID
     Route: 048
     Dates: start: 20160520
  12. UPTRAVI [Suspect]
     Active Substance: SELEXIPAG
     Dosage: 1600 MCG, BID
     Route: 048
     Dates: start: 201604
  13. UPTRAVI [Suspect]
     Active Substance: SELEXIPAG
     Indication: PULMONARY ARTERIAL HYPERTENSION
     Dosage: 200 MCG, BID
     Route: 048
     Dates: start: 201603
  14. UPTRAVI [Suspect]
     Active Substance: SELEXIPAG
     Dosage: 600 MCG, BID
     Route: 048
     Dates: start: 20160324
  15. ALLOPURINOL. [Concomitant]
     Active Substance: ALLOPURINOL
     Dosage: 300 MG, QD
     Dates: start: 201604
  16. PANTOPRAZOLE [Concomitant]
     Active Substance: PANTOPRAZOLE SODIUM
     Dosage: 40 MG, QD
  17. FUROSEMIDE. [Concomitant]
     Active Substance: FUROSEMIDE
  18. COREG [Concomitant]
     Active Substance: CARVEDILOL
     Dosage: 3.125 MG, BID
  19. ASPIRIN. [Concomitant]
     Active Substance: ASPIRIN
  20. FISH OIL [Concomitant]
     Active Substance: FISH OIL
  21. MAGNESIUM [Concomitant]
     Active Substance: MAGNESIUM
  22. PROVENTIL [Concomitant]
     Active Substance: ALBUTEROL
     Dosage: 90 MCG, PRN
  23. ALBUTEROL. [Concomitant]
     Active Substance: ALBUTEROL
  24. SINGULAIR [Concomitant]
     Active Substance: MONTELUKAST SODIUM
     Dosage: 10 MG, QD
  25. UPTRAVI [Suspect]
     Active Substance: SELEXIPAG
     Dosage: 1000 MCG, BID
     Route: 048
     Dates: start: 20160429
  26. CRANBERRY. [Concomitant]
     Active Substance: CRANBERRY
     Dosage: 4200 MG, BID
     Dates: start: 201512

REACTIONS (11)
  - Blood potassium decreased [Unknown]
  - Bronchitis [Unknown]
  - Chills [Not Recovered/Not Resolved]
  - Pain in extremity [Unknown]
  - Nasal congestion [Not Recovered/Not Resolved]
  - Flushing [Not Recovered/Not Resolved]
  - Nausea [Unknown]
  - Headache [Unknown]
  - Condition aggravated [Not Recovered/Not Resolved]
  - Feeling hot [Not Recovered/Not Resolved]
  - Chest discomfort [Not Recovered/Not Resolved]

NARRATIVE: CASE EVENT DATE: 201603
